FAERS Safety Report 14593215 (Version 2)
Quarter: 2018Q3

REPORT INFORMATION
  Report Type: Spontaneous
  Country: US (occurrence: US)
  Receive Date: 20180302
  Receipt Date: 20180705
  Transmission Date: 20181010
  Serious: No
  Sender: FDA-Public Use
  Company Number: US-PFIZER INC-2018089611

PATIENT
  Age: 33 Year
  Sex: Female

DRUGS (3)
  1. GABAPENTIN. [Suspect]
     Active Substance: GABAPENTIN
     Indication: PAIN IN EXTREMITY
     Dosage: 600 MG, 3X/DAY
     Dates: start: 2013, end: 2014
  2. GABAPENTIN. [Suspect]
     Active Substance: GABAPENTIN
     Indication: NERVE INJURY
  3. GABAPENTIN. [Suspect]
     Active Substance: GABAPENTIN
     Indication: BACK DISORDER

REACTIONS (3)
  - Pain in extremity [Recovering/Resolving]
  - Product use in unapproved indication [Unknown]
  - Amnesia [Not Recovered/Not Resolved]

NARRATIVE: CASE EVENT DATE: 2013
